FAERS Safety Report 5000116-5 (Version None)
Quarter: 2006Q3

REPORT INFORMATION
  Report Type: 
  Country: None (occurrence: None)
  Receive Date: 20060509
  Receipt Date: 20060426
  Transmission Date: 20061208
  Serious: Yes (Hospitalization)
  Sender: FDA-Public Use
  Company Number: 2006011109

PATIENT
  Age: 32 Year
  Sex: Female

DRUGS (9)
  1. SUTENT [Suspect]
     Indication: METASTATIC RENAL CELL CARCINOMA
     Dosage: 50 MG (50 MG, DAILY INTERVAL: EVERY DAY), ORAL
     Route: 048
     Dates: start: 20051230, end: 20060117
  2. OXYCONTIN [Concomitant]
  3. OXYNORM (OXYCODONE HYDROCHLORIDE) [Concomitant]
  4. DICLOFENAC SODIUM [Concomitant]
  5. ACETAMINOPHEN [Concomitant]
  6. CO-DANTHRAMER (DANTRON, POLOXAMER) [Concomitant]
  7. BISACODYL (BISACODYL) [Concomitant]
  8. LANSOPRAZOLE [Concomitant]
  9. NOZINAN (LEVOMEPROMAZINE) [Concomitant]

REACTIONS (8)
  - DRUG INTERACTION [None]
  - DYSPHAGIA [None]
  - FACE OEDEMA [None]
  - LOCALISED OEDEMA [None]
  - NECK PAIN [None]
  - PHARYNGOLARYNGEAL PAIN [None]
  - PROCEDURAL COMPLICATION [None]
  - UNEVALUABLE EVENT [None]
